FAERS Safety Report 20132658 (Version 2)
Quarter: 2022Q1

REPORT INFORMATION
  Report Type: Spontaneous
  Country: KR (occurrence: KR)
  Receive Date: 20211130
  Receipt Date: 20220201
  Transmission Date: 20220424
  Serious: Yes (Other)
  Sender: FDA-Public Use
  Company Number: KR-NOVARTISPH-NVSC2021KR272466

PATIENT
  Age: 61 Year
  Sex: Male

DRUGS (1)
  1. SECUKINUMAB [Suspect]
     Active Substance: SECUKINUMAB
     Indication: Psoriasis
     Dosage: 300 MG (WEEKS 0, 1,2, 3, AND 4, AND EVERY 4)
     Route: 058

REACTIONS (1)
  - Oesophageal candidiasis [Recovered/Resolved]
